FAERS Safety Report 13112977 (Version 1)
Quarter: 2017Q1

REPORT INFORMATION
  Report Type: Spontaneous
  Country: US (occurrence: US)
  Receive Date: 20170112
  Receipt Date: 20170112
  Transmission Date: 20170509
  Serious: Yes (Other)
  Sender: FDA-Public Use
  Company Number: None

PATIENT
  Age: 59 Year
  Sex: Male
  Weight: 68.2 kg

DRUGS (1)
  1. FLUOXETINE [Suspect]
     Active Substance: FLUOXETINE HYDROCHLORIDE
     Indication: DEPRESSION
     Route: 048
     Dates: start: 20161212, end: 20161213

REACTIONS (5)
  - Muscle spasms [None]
  - Headache [None]
  - Hypertension [None]
  - Muscle twitching [None]
  - Dysphemia [None]

NARRATIVE: CASE EVENT DATE: 20161213
